FAERS Safety Report 11232881 (Version 3)
Quarter: 2015Q4

REPORT INFORMATION
  Report Type: Report from Study
  Country: US (occurrence: US)
  Receive Date: 20150701
  Receipt Date: 20151212
  Transmission Date: 20160304
  Serious: Yes (Other)
  Sender: FDA-Public Use
  Company Number: US-ASTRAZENECA-2015SE17515

PATIENT
  Sex: Female

DRUGS (2)
  1. OLAPARIB [Suspect]
     Active Substance: OLAPARIB
     Indication: OVARIAN CANCER
     Route: 048
  2. OLAPARIB [Suspect]
     Active Substance: OLAPARIB
     Indication: OVARIAN CANCER
     Route: 048

REACTIONS (16)
  - Nausea [Unknown]
  - Eructation [Unknown]
  - Dry mouth [Unknown]
  - Decreased appetite [Unknown]
  - Flatulence [Unknown]
  - Neck pain [Unknown]
  - Abdominal pain [Unknown]
  - Back pain [Unknown]
  - Arthritis [Not Recovered/Not Resolved]
  - Neuropathy peripheral [Unknown]
  - Intestinal obstruction [Unknown]
  - Cognitive disorder [Unknown]
  - Abdominal discomfort [Unknown]
  - Joint swelling [Unknown]
  - Oropharyngeal pain [Unknown]
  - Pruritus [Unknown]
